FAERS Safety Report 6996462 (Version 2)
Quarter: 2020Q3

REPORT INFORMATION
  Report Type: Report from Study
  Country: US (occurrence: US)
  Receive Date: 20090518
  Receipt Date: 20090703
  Transmission Date: 20201105
  Serious: Yes (Death)
  Sender: FDA-Public Use
  Company Number: US-ROCHE-632775

PATIENT
  Age: 96 Year
  Sex: Female

DRUGS (2)
  1. IBANDRONIC ACID. [Suspect]
     Active Substance: IBANDRONIC ACID
     Indication: PRODUCT USED FOR UNKNOWN INDICATION
     Route: 065
  2. CALCIUM [Concomitant]
     Active Substance: CALCIUM
     Dosage: DRUG REPORTED AS LIQUID CALCIUM SUPPLEMENT

REACTIONS (2)
  - Cardiac failure [Fatal]
  - Respiratory failure [Fatal]
